FAERS Safety Report 20225620 (Version 1)
Quarter: 2021Q4

REPORT INFORMATION
  Report Type: Other
  Country: US (occurrence: US)
  Receive Date: 20211224
  Receipt Date: 20211224
  Transmission Date: 20220303
  Serious: No
  Sender: FDA-Public Use
  Company Number: US-NEUROCRINE BIOSCIENCES INC.-2021NBI07307

PATIENT

DRUGS (1)
  1. INGREZZA [Suspect]
     Active Substance: VALBENAZINE
     Indication: Extrapyramidal disorder
     Dosage: UNK UNK, QD
     Route: 048
     Dates: end: 20211213

REACTIONS (5)
  - Migraine [Unknown]
  - Abdominal discomfort [Unknown]
  - Nausea [Unknown]
  - Insomnia [Unknown]
  - Off label use [Unknown]
